FAERS Safety Report 6276403-X (Version None)
Quarter: 2009Q3

REPORT INFORMATION
  Report Type: 
  Country: None (occurrence: None)
  Receive Date: 20090720
  Receipt Date: 20090316
  Transmission Date: 20100115
  Serious: Yes (Other)
  Sender: FDA-Public Use
  Company Number: 2009PV000025

PATIENT
  Age: 76 Year
  Sex: Male

DRUGS (1)
  1. DEPODUR [Suspect]
     Indication: PROCEDURAL PAIN
     Dosage: 15 MG;1X;ED

REACTIONS (1)
  - RESPIRATORY DEPRESSION [None]
